FAERS Safety Report 5253518-6 (Version None)
Quarter: 2007Q1

REPORT INFORMATION
  Report Type: 
  Country: None (occurrence: None)
  Receive Date: 20070301
  Receipt Date: 20070220
  Transmission Date: 20070707
  Serious: Yes (Other)
  Sender: FDA-Public Use
  Company Number: AU-PFIZER INC-2007009920

PATIENT
  Age: 78 Year
  Sex: Male

DRUGS (1)
  1. NEURONTIN [Suspect]
     Indication: NEURALGIA

REACTIONS (8)
  - ANXIETY [None]
  - DEPRESSION [None]
  - DRUG HYPERSENSITIVITY [None]
  - INSOMNIA [None]
  - PANIC ATTACK [None]
  - PERSONALITY CHANGE [None]
  - SKIN IRRITATION [None]
  - SUICIDAL IDEATION [None]
